FAERS Safety Report 15307225 (Version 5)
Quarter: 2019Q3

REPORT INFORMATION
  Report Type: Spontaneous
  Country: US (occurrence: US)
  Receive Date: 20180822
  Receipt Date: 20190723
  Transmission Date: 20191004
  Serious: Yes (Hospitalization, Other)
  Sender: FDA-Public Use
  Company Number: US-GLAXOSMITHKLINE-US2018GSK152002

PATIENT
  Sex: Female
  Weight: 220 kg

DRUGS (5)
  1. OMEPRAZOLE. [Suspect]
     Active Substance: OMEPRAZOLE
     Dosage: 40 MG, QD
     Route: 048
  2. LANSOPRAZOLE. [Suspect]
     Active Substance: LANSOPRAZOLE
     Indication: PRODUCT USED FOR UNKNOWN INDICATION
     Dosage: 30 MG, QD
     Route: 048
  3. OMEPRAZOLE. [Suspect]
     Active Substance: OMEPRAZOLE
     Indication: GASTROOESOPHAGEAL REFLUX DISEASE
     Dosage: 20 MG, QD
     Route: 048
  4. PREVACID [Suspect]
     Active Substance: LANSOPRAZOLE
     Indication: GASTROOESOPHAGEAL REFLUX DISEASE
     Dosage: UNK
     Route: 065
  5. PREVACID [Suspect]
     Active Substance: LANSOPRAZOLE
     Indication: GASTROOESOPHAGEAL REFLUX DISEASE
     Dosage: 30 MG, QD
     Route: 048

REACTIONS (15)
  - Hypertensive nephropathy [Unknown]
  - Proteinuria [Unknown]
  - Renal colic [Unknown]
  - Chronic kidney disease [Not Recovered/Not Resolved]
  - Pyelonephritis [Unknown]
  - Renal impairment [Unknown]
  - Renal cyst [Unknown]
  - Nephropathy [Unknown]
  - Blood creatinine increased [Unknown]
  - Renal disorder [Unknown]
  - Diabetic nephropathy [Unknown]
  - Renal failure [Unknown]
  - Nocturia [Unknown]
  - Acute kidney injury [Unknown]
  - Microalbuminuria [Unknown]
